FAERS Safety Report 25005828 (Version 3)
Quarter: 2025Q2

REPORT INFORMATION
  Report Type: Spontaneous
  Country: US (occurrence: US)
  Receive Date: 20250224
  Receipt Date: 20250407
  Transmission Date: 20250716
  Serious: No
  Sender: PFIZER
  Company Number: US-PFIZER INC-PV202500021524

PATIENT
  Age: 48 Year
  Sex: Female
  Weight: 68.39 kg

DRUGS (1)
  1. DEMEROL [Suspect]
     Active Substance: MEPERIDINE HYDROCHLORIDE
     Indication: Pain
     Route: 030

REACTIONS (2)
  - Drug hypersensitivity [Unknown]
  - Burning sensation [Recovered/Resolved]
